FAERS Safety Report 21393737 (Version 1)
Quarter: 2022Q3

REPORT INFORMATION
  Report Type: Spontaneous
  Country: US (occurrence: US)
  Receive Date: 20220930
  Receipt Date: 20220930
  Transmission Date: 20221027
  Serious: Yes (Other)
  Sender: FDA-Public Use
  Company Number: US-STRIDES ARCOLAB LIMITED-2022SP012462

PATIENT
  Sex: Male

DRUGS (4)
  1. RANITIDINE [Suspect]
     Active Substance: RANITIDINE
     Indication: Product used for unknown indication
     Dosage: UNK, RANITIDINE (PRESCRIPTION)
     Route: 065
  2. RANITIDINE [Suspect]
     Active Substance: RANITIDINE
     Dosage: UNK, RANITIDINE (OVER THE COUNTER)
     Route: 065
  3. RANITIDINE [Suspect]
     Active Substance: RANITIDINE
     Dosage: UNK, ZANTAC (PRESCRIPTION)
     Route: 065
  4. RANITIDINE [Suspect]
     Active Substance: RANITIDINE
     Dosage: UNK, ZANTAC (OVER THE COUNTER)
     Route: 065

REACTIONS (1)
  - Prostate cancer [Unknown]
